FAERS Safety Report 6058499-3 (Version None)
Quarter: 2009Q1

REPORT INFORMATION
  Report Type: 
  Country: None (occurrence: None)
  Receive Date: 20090127
  Receipt Date: 20090127
  Transmission Date: 20090719
  Serious: No
  Sender: FDA-Public Use
  Company Number: None

PATIENT
  Age: 50 Year
  Sex: Male

DRUGS (1)
  1. TOLTERODINE [Suspect]
     Dosage: 4 MG EVERY DAY PO
     Route: 048
     Dates: start: 20080215, end: 20080313

REACTIONS (1)
  - URINARY RETENTION [None]
